FAERS Safety Report 9845486 (Version 1)
Quarter: 2013Q4

REPORT INFORMATION
  Report Type: Spontaneous
  Country: US (occurrence: None)
  Receive Date: 20131219
  Receipt Date: 20131219
  Transmission Date: 20140711
  Serious: Yes (Other)
  Sender: FDA-Public Use
  Company Number: 163-20785-13090748

PATIENT
  Age: 54 Year
  Sex: Male
  Weight: 85.3 kg

DRUGS (9)
  1. THALOMID [Suspect]
     Dosage: UNKNOWN - UNKNOWN THERAPY DATES PO CAPSULES
     Route: 048
  2. MORPHINE SULFATE  ER (MORPHINE SULFATE) [Concomitant]
  3. VIAGRA (SILDENAFIL CITRATE) (UNKNOWN) [Concomitant]
  4. VITAMIN C (ASCORBIC ACID) [Concomitant]
  5. VALTREX (VALACICLOVIR HYDROCHLORIDE) [Concomitant]
  6. NEXIUM (ESOMEPRAZOLE) [Concomitant]
  7. NORVASC (AMLODIPINE BESILATE) [Concomitant]
  8. ENOXAPARIN SODIUM (HEPARIN-FRACTION, SODIUM SALT) [Concomitant]
  9. DEXAMETHASONE (DEXAMETHASONE) [Concomitant]

REACTIONS (1)
  - Deep vein thrombosis [None]
